FAERS Safety Report 5590361-2 (Version None)
Quarter: 2008Q1

REPORT INFORMATION
  Report Type: 
  Country: None (occurrence: None)
  Receive Date: 20080114
  Receipt Date: 20080108
  Transmission Date: 20080703
  Serious: Yes (Other)
  Sender: FDA-Public Use
  Company Number: US-ROXANE LABORATORIES, INC-2008-BP-00353RO

PATIENT
  Age: 58 Year
  Sex: Female

DRUGS (2)
  1. CYCLOPHOSPHAMIDE [Suspect]
     Indication: INTERSTITIAL LUNG DISEASE
  2. PREDNISONE TAB [Suspect]
     Indication: INTERSTITIAL LUNG DISEASE

REACTIONS (2)
  - ALVEOLAR PROTEINOSIS [None]
  - PULMONARY FIBROSIS [None]
